FAERS Safety Report 14967064 (Version 1)
Quarter: 2018Q3

REPORT INFORMATION
  Report Type: Report from Study
  Country: ES (occurrence: ES)
  Receive Date: 20180604
  Receipt Date: 20180604
  Transmission Date: 20181010
  Serious: Yes (Hospitalization)
  Sender: FDA-Public Use
  Company Number: ES-CHEPLA-C20180271

PATIENT
  Age: 28 Year
  Sex: Male

DRUGS (5)
  1. TRETINOINA (155A) [Suspect]
     Active Substance: TRETINOIN
     Indication: ACUTE PROMYELOCYTIC LEUKAEMIA
     Dosage: 50MG/12H
     Route: 048
     Dates: start: 20170601, end: 20170630
  2. DEXAMETASONA (722A) [Concomitant]
     Active Substance: DEXAMETHASONE
     Dosage: 4MG/12 H EN DOSIS DESCENDENTE
     Route: 048
     Dates: start: 20170601
  3. ACICLOVIR [Concomitant]
     Active Substance: ACYCLOVIR
     Dosage: 800MG/12H
     Route: 048
     Dates: start: 20170601
  4. FLUCONAZOL (2432A) [Suspect]
     Active Substance: FLUCONAZOLE
     Dosage: 400 MG /DIA
     Route: 048
     Dates: start: 20170601, end: 20170628
  5. IDARRUBICINA [Suspect]
     Active Substance: IDARUBICIN
     Indication: ACUTE PROMYELOCYTIC LEUKAEMIA
     Dosage: 25,92 MG
     Route: 042
     Dates: start: 20170602, end: 20170609

REACTIONS (1)
  - Hepatitis acute [Recovered/Resolved]

NARRATIVE: CASE EVENT DATE: 20170605
